FAERS Safety Report 6527691-3 (Version None)
Quarter: 2010Q1

REPORT INFORMATION
  Report Type: 
  Country: None (occurrence: None)
  Receive Date: 20100106
  Receipt Date: 20091223
  Transmission Date: 20100710
  Serious: Yes (Hospitalization)
  Sender: FDA-Public Use
  Company Number: JP-RANBAXY-2009RR-30246

PATIENT
  Age: 73 Year
  Sex: Male

DRUGS (9)
  1. PARACETAMOL [Suspect]
  2. ASPIRIN [Concomitant]
  3. CEFACLOR [Concomitant]
  4. PREDNISOLONE [Concomitant]
  5. VINCRISTINE [Concomitant]
  6. BLEOMYCIN SULFATE [Concomitant]
  7. CYTARABINE [Concomitant]
  8. METHOTREXATE [Concomitant]
  9. CYCLOSPORINE [Concomitant]

REACTIONS (1)
  - AGRANULOCYTOSIS [None]
